FAERS Safety Report 19831515 (Version 1)
Quarter: 2021Q3

REPORT INFORMATION
  Report Type: Other
  Country: US (occurrence: US)
  Receive Date: 20210915
  Receipt Date: 20210915
  Transmission Date: 20211014
  Serious: No
  Sender: FDA-Public Use
  Company Number: US-NEUROCRINE BIOSCIENCES INC.-2021NBI05020

PATIENT

DRUGS (4)
  1. VRAYLAR [Concomitant]
     Active Substance: CARIPRAZINE
     Dosage: 1.5 MILLIGRAM, QD
  2. LAMICTAL [Concomitant]
     Active Substance: LAMOTRIGINE
     Dosage: 200 MILLIGRAM, BID
  3. INGREZZA [Suspect]
     Active Substance: VALBENAZINE
     Indication: TARDIVE DYSKINESIA
     Dosage: 80 MILLIGRAM, QD
     Route: 048
     Dates: start: 20210628
  4. SEROQUEL XR [Concomitant]
     Active Substance: QUETIAPINE FUMARATE
     Dosage: 400 MILLIGRAM, QHS

REACTIONS (2)
  - Headache [Not Recovered/Not Resolved]
  - Therapeutic product effect decreased [Unknown]

NARRATIVE: CASE EVENT DATE: 2021
